FAERS Safety Report 4538300-7 (Version None)
Quarter: 2004Q4

REPORT INFORMATION
  Report Type: 
  Country: None (occurrence: None)
  Receive Date: 20041227
  Receipt Date: 20041221
  Transmission Date: 20050328
  Serious: Yes (Other)
  Sender: FDA-Public Use
  Company Number: JP-BRISTOL-MYERS SQUIBB COMPANY-12802146

PATIENT
  Age: 18 Year
  Sex: Female

DRUGS (5)
  1. CYCLOPHOSPHAMIDE [Suspect]
     Indication: ACUTE MYELOID LEUKAEMIA
     Dosage: 60 MG/KG/DAY ON DAY -3 AND 40 MG/KG/DAY ON -2.
  2. ETOPOSIDE [Suspect]
     Indication: ACUTE MYELOID LEUKAEMIA
     Dosage: ON DAY 10
  3. CYTARABINE [Suspect]
     Indication: ACUTE MYELOID LEUKAEMIA
     Dosage: ON DAYS 14 TO 10
  4. RADIATION THERAPY [Suspect]
     Indication: ACUTE MYELOID LEUKAEMIA
     Dosage: 2 GY X 6 ON DAYS 8 TO 5.
  5. NEUPOGEN [Concomitant]
     Indication: ACUTE MYELOID LEUKAEMIA
     Dosage: UG/DAY ON DAYS 14 TO 8

REACTIONS (1)
  - CARDIAC FAILURE CONGESTIVE [None]
